FAERS Safety Report 16377439 (Version 1)
Quarter: 2019Q2

REPORT INFORMATION
  Report Type: Spontaneous
  Country: US (occurrence: US)
  Receive Date: 20190425
  Receipt Date: 20190425
  Transmission Date: 20190711
  Serious: Yes (Hospitalization)
  Sender: FDA-Public Use
  Company Number: None

PATIENT
  Age: 50 Year
  Sex: Female

DRUGS (1)
  1. CAPECITABINE TAB 500MG [Suspect]
     Active Substance: CAPECITABINE
     Route: 048
     Dates: start: 201901

REACTIONS (6)
  - Disease progression [None]
  - Decreased appetite [None]
  - Alopecia [None]
  - Adverse event [None]
  - Brain neoplasm [None]
  - Fatigue [None]

NARRATIVE: CASE EVENT DATE: 20190425
